FAERS Safety Report 9723918 (Version 1)
Quarter: 2013Q4

REPORT INFORMATION
  Report Type: Spontaneous
  Country: US (occurrence: US)
  Receive Date: 20131202
  Receipt Date: 20131202
  Transmission Date: 20140711
  Serious: Yes (Other)
  Sender: FDA-Public Use
  Company Number: US-009507513-1311USA012443

PATIENT
  Sex: Female
  Weight: 63.49 kg

DRUGS (3)
  1. PEGINTRON [Suspect]
     Indication: HEPATITIS C
     Dosage: REDIPEN
  2. REBETOL [Suspect]
     Indication: HEPATITIS C
     Dosage: UNK
     Route: 048
  3. TELAPREVIR [Suspect]
     Indication: HEPATITIS C
     Dosage: UNK

REACTIONS (9)
  - Weight decreased [Unknown]
  - Vomiting [Unknown]
  - Aphagia [Unknown]
  - Insomnia [Unknown]
  - Parosmia [Unknown]
  - Nervous system disorder [Unknown]
  - Arthritis [Unknown]
  - Psoriasis [Unknown]
  - Oral pain [Unknown]
